FAERS Safety Report 6317193-1 (Version None)
Quarter: 2009Q3

REPORT INFORMATION
  Report Type: 
  Country: None (occurrence: None)
  Receive Date: 20090820
  Receipt Date: 20090811
  Transmission Date: 20100115
  Serious: Yes (Hospitalization)
  Sender: FDA-Public Use
  Company Number: JP-AMGEN-US360064

PATIENT
  Age: 61 Year
  Sex: Male

DRUGS (9)
  1. ENBREL [Suspect]
     Indication: RHEUMATOID ARTHRITIS
     Route: 058
  2. ENBREL [Suspect]
     Dosage: LYOPHYLIZED, 25 MG 2/WEEK
     Route: 058
     Dates: start: 20080619
  3. FOLIAMIN [Concomitant]
     Dosage: UNSPECIFIED
     Route: 048
  4. PLETAL [Concomitant]
     Dosage: UNSPECIFIED
     Route: 048
  5. DIOVAN [Concomitant]
     Dosage: UNSPECIFIED
     Route: 048
  6. PANALDINE [Concomitant]
     Dosage: UNSPECIFIED
     Route: 048
  7. ARTIST [Concomitant]
     Dosage: UNSPECIFIED
     Route: 048
  8. RHEUMATREX [Concomitant]
     Indication: RHEUMATOID ARTHRITIS
     Route: 048
  9. ASPIRIN [Concomitant]
     Dosage: UNSPECIFIED
     Route: 048

REACTIONS (2)
  - LOSS OF CONSCIOUSNESS [None]
  - MYOCARDIAL INFARCTION [None]
